FAERS Safety Report 8874940 (Version 1)
Quarter: 2012Q4

REPORT INFORMATION
  Report Type: 
  Country: US (occurrence: US)
  Receive Date: 20121023
  Receipt Date: 20121023
  Transmission Date: 20130627
  Serious: Yes (Hospitalization, Other)
  Sender: FDA-Public Use
  Company Number: US-ROCHE-GNE284991

PATIENT
  Age: 46 Year
  Sex: Female
  Weight: 60.06 kg

DRUGS (4)
  1. RAPTIVA [Suspect]
     Indication: PSORIASIS
     Dosage: 60 mg, 1/Week
     Route: 058
     Dates: start: 20080702, end: 20090421
  2. RAPTIVA [Suspect]
     Indication: PUSTULAR PSORIASIS
  3. PRILOSEC [Concomitant]
     Indication: PRODUCT USED FOR UNKNOWN INDICATION
     Dosage: UNK
     Route: 065
  4. LORTAB [Concomitant]
     Indication: PRODUCT USED FOR UNKNOWN INDICATION
     Dosage: UNK
     Route: 065

REACTIONS (3)
  - Thrombocytopenia [Recovered/Resolved]
  - Pruritus [Unknown]
  - Pain [Unknown]
